FAERS Safety Report 12065529 (Version 2)
Quarter: 2016Q1

REPORT INFORMATION
  Report Type: Spontaneous
  Country: US (occurrence: US)
  Receive Date: 20160210
  Receipt Date: 20160224
  Transmission Date: 20160526
  Serious: Yes (Hospitalization)
  Sender: FDA-Public Use
  Company Number: US-VERTEX PHARMACEUTICALS-2016-000597

PATIENT
  Age: 41 Year
  Sex: Female

DRUGS (5)
  1. ORKAMBI [Suspect]
     Active Substance: IVACAFTOR\LUMACAFTOR
     Indication: CYSTIC FIBROSIS
     Dosage: UNK
     Route: 048
     Dates: start: 20151023, end: 201601
  2. PULMOZYME [Concomitant]
     Active Substance: DORNASE ALFA
  3. ANTIBIOTICS [Interacting]
     Active Substance: UNSPECIFIED INGREDIENT
  4. SODIUM CHLORIDE. [Concomitant]
     Active Substance: SODIUM CHLORIDE
  5. ENZYMES [Concomitant]

REACTIONS (3)
  - Gastrointestinal disorder [Unknown]
  - Drug interaction [Unknown]
  - Cystic fibrosis respiratory infection suppression [Not Recovered/Not Resolved]

NARRATIVE: CASE EVENT DATE: 201601
